FAERS Safety Report 7272531-0 (Version None)
Quarter: 2011Q1

REPORT INFORMATION
  Report Type: 
  Country: None (occurrence: None)
  Receive Date: 20110203
  Receipt Date: 20110126
  Transmission Date: 20110831
  Serious: Yes (Hospitalization)
  Sender: FDA-Public Use
  Company Number: GB-PFIZER INC-2011020210

PATIENT

DRUGS (1)
  1. EPANUTIN [Suspect]
     Dosage: 50 MG, UNK

REACTIONS (1)
  - CONVULSION [None]
